FAERS Safety Report 4609440-9 (Version None)
Quarter: 2005Q1

REPORT INFORMATION
  Report Type: 
  Country: None (occurrence: None)
  Receive Date: 20050314
  Receipt Date: 20050221
  Transmission Date: 20050727
  Serious: Yes (Other)
  Sender: FDA-Public Use
  Company Number: ATO-04-0977

PATIENT
  Age: 66 Year
  Sex: Male

DRUGS (1)
  1. TRISENOX [Suspect]
     Indication: ACUTE PROMYELOCYTIC LEUKAEMIA
     Dosage: 0.15MG/KG (QD), INTRAVENOUS
     Route: 042
     Dates: start: 20041208

REACTIONS (4)
  - DISSEMINATED INTRAVASCULAR COAGULATION [None]
  - ELECTROCARDIOGRAM QT PROLONGED [None]
  - RETINOIC ACID SYNDROME [None]
  - VENTRICULAR TACHYCARDIA [None]
